FAERS Safety Report 5212880-0 (Version None)
Quarter: 2007Q1

REPORT INFORMATION
  Report Type: 
  Country: None (occurrence: None)
  Receive Date: 20070119
  Receipt Date: 20070109
  Transmission Date: 20070707
  Serious: Yes (Hospitalization)
  Sender: FDA-Public Use
  Company Number: PHHO2007AU00768

PATIENT
  Age: 28 Year
  Sex: Male
  Weight: 58 kg

DRUGS (4)
  1. NO TREATMENT RECEIVED NOMED [Suspect]
     Indication: RENAL TRANSPLANT
  2. NEORAL [Suspect]
     Indication: RENAL TRANSPLANT
     Dosage: 300 MG DAILY
     Route: 048
     Dates: start: 20061218
  3. MYFORTIC [Suspect]
     Indication: RENAL TRANSPLANT
     Dosage: 1440 MG DAILY
     Route: 048
     Dates: start: 20061218
  4. PREDNISOLONE [Suspect]
     Indication: RENAL TRANSPLANT
     Dosage: 25 MG DAILY
     Route: 048
     Dates: start: 20061218

REACTIONS (3)
  - HAEMOGLOBIN DECREASED [None]
  - INCISION SITE HAEMATOMA [None]
  - WOUND HAEMORRHAGE [None]
